FAERS Safety Report 5563379-3 (Version None)
Quarter: 2007Q4

REPORT INFORMATION
  Report Type: 
  Country: None (occurrence: None)
  Receive Date: 20071217
  Receipt Date: 20070419
  Transmission Date: 20080405
  Serious: No
  Sender: FDA-Public Use
  Company Number: US-ASTRAZENECA-2007UW07817

PATIENT
  Age: 56 Year
  Sex: Female
  Weight: 96.2 kg

DRUGS (16)
  1. CRESTOR [Suspect]
     Indication: BLOOD CHOLESTEROL INCREASED
     Route: 048
     Dates: start: 20030101
  2. DIOVAN [Concomitant]
  3. HYDROCHLOROTHIAZIDE [Concomitant]
  4. ACTOS [Concomitant]
  5. TRICOR [Concomitant]
  6. PREMPRO [Concomitant]
  7. AMBIEN CR [Concomitant]
  8. XANAX [Concomitant]
  9. FLOVENT [Concomitant]
  10. ULTRAM [Concomitant]
  11. ASPIRIN [Concomitant]
  12. GUAIFENESIN [Concomitant]
  13. CALCIUM WITH VITAMIN D [Concomitant]
  14. RANITIDINE HCL [Concomitant]
  15. IBUPROFEN [Concomitant]
  16. CHLOR-TRIMETON [Concomitant]

REACTIONS (9)
  - ABASIA [None]
  - ARTHRALGIA [None]
  - EPICONDYLITIS [None]
  - INFLAMMATION [None]
  - MUSCLE INJURY [None]
  - MYALGIA [None]
  - POLYURIA [None]
  - TENDON PAIN [None]
  - WEIGHT INCREASED [None]
